FAERS Safety Report 5796688-3 (Version None)
Quarter: 2008Q2

REPORT INFORMATION
  Report Type: 
  Country: None (occurrence: None)
  Receive Date: 20080630
  Receipt Date: 20080630
  Transmission Date: 20081010
  Serious: Yes (Hospitalization)
  Sender: FDA-Public Use
  Company Number: None

PATIENT
  Sex: Female

DRUGS (11)
  1. FLEET'S PHOSPHOSODA [Suspect]
     Indication: COLONOSCOPY
     Dosage: 45 CC ONCE PO
     Route: 048
     Dates: start: 20080610, end: 20080610
  2. FOXOMAX [Concomitant]
  3. ATENOLOL [Concomitant]
  4. HYDROCHLORITHIAZIDE [Concomitant]
  5. M.V.I. [Concomitant]
  6. CALCIUM [Concomitant]
  7. VITAMIN E [Concomitant]
  8. ASPIRIN [Concomitant]
  9. FISH OIL [Concomitant]
  10. ALTACE [Concomitant]
  11. LIPITOR [Concomitant]

REACTIONS (3)
  - BLOOD SODIUM DECREASED [None]
  - CONVULSION [None]
  - DELIRIUM [None]
